FAERS Safety Report 25983486 (Version 1)
Quarter: 2025Q4

REPORT INFORMATION
  Report Type: Spontaneous
  Country: EU (occurrence: EU)
  Receive Date: 20251031
  Receipt Date: 20251031
  Transmission Date: 20260117
  Serious: Yes (Other)
  Sender: RANBAXY
  Company Number: EU-SUN PHARMACEUTICAL INDUSTRIES LTD-2025RR-532768

PATIENT
  Age: 75 Year
  Sex: Female

DRUGS (1)
  1. MORPHINE [Suspect]
     Active Substance: MORPHINE
     Indication: Spinal pain
     Dosage: 10 MILLIGRAM, DAILY
     Route: 037

REACTIONS (5)
  - Drug ineffective [Unknown]
  - Pain [Unknown]
  - Drug tolerance [Unknown]
  - Visual analogue scale [Unknown]
  - Neuralgia [Unknown]
